FAERS Safety Report 5736267-7 (Version None)
Quarter: 2008Q2

REPORT INFORMATION
  Report Type: 
  Country: None (occurrence: None)
  Receive Date: 20080506
  Receipt Date: 20070330
  Transmission Date: 20081010
  Serious: Yes (Hospitalization)
  Sender: FDA-Public Use
  Company Number: T200700380

PATIENT
  Sex: Female

DRUGS (2)
  1. METHADOSE [Suspect]
  2. ROXICODONE [Suspect]
     Dosage: 1-2 TABLETS DURING THE DAY

REACTIONS (2)
  - HYPOTENSION [None]
  - RESPIRATORY DEPRESSION [None]
